FAERS Safety Report 23845740 (Version 1)
Quarter: 2024Q2

REPORT INFORMATION
  Report Type: Spontaneous
  Country: US (occurrence: US)
  Receive Date: 20240511
  Receipt Date: 20240511
  Transmission Date: 20240716
  Serious: No
  Sender: FDA-Public Use
  Company Number: US-JNJFOC-20240485189

PATIENT
  Age: 8 Decade
  Sex: Male

DRUGS (1)
  1. IMODIUM A-D [Suspect]
     Active Substance: LOPERAMIDE HYDROCHLORIDE
     Indication: Diarrhoea
     Dosage: WHATEVER THAT CAP HOLDER WAS,JUST FOLLOWING THE INSTRUCTIONS INDICATED ON THE LABEL.
     Route: 048
     Dates: start: 2023

REACTIONS (1)
  - Drug ineffective [Unknown]
